FAERS Safety Report 6820141-9 (Version None)
Quarter: 2010Q3

REPORT INFORMATION
  Report Type: 
  Country: None (occurrence: None)
  Receive Date: 20100707
  Receipt Date: 20100701
  Transmission Date: 20110219
  Serious: Yes (Other)
  Sender: FDA-Public Use
  Company Number: US-MERCK-0808USA01434

PATIENT
  Age: 89 Year
  Sex: Female

DRUGS (6)
  1. FOSAMAX [Suspect]
     Indication: OSTEOPOROSIS
     Route: 048
     Dates: start: 20021027, end: 20050331
  2. HYDROCODONE BITARTRATE [Concomitant]
     Indication: PAIN
     Route: 065
     Dates: start: 20030101
  3. BEXTRA [Concomitant]
     Indication: PAIN
     Route: 065
     Dates: start: 20030101, end: 20050101
  4. TIMOLOL [Concomitant]
     Indication: GLAUCOMA
     Route: 065
     Dates: start: 20030101
  5. ARICEPT [Concomitant]
     Indication: DEMENTIA
     Route: 065
     Dates: start: 20040101
  6. HORMONES (UNSPECIFIED) [Concomitant]
     Route: 065
     Dates: start: 20030101

REACTIONS (12)
  - CANDIDIASIS [None]
  - CERUMEN IMPACTION [None]
  - DEAFNESS NEUROSENSORY [None]
  - ESCHAR [None]
  - GLOSSODYNIA [None]
  - MACULAR DEGENERATION [None]
  - MALAISE [None]
  - MOUTH ULCERATION [None]
  - ORAL TORUS [None]
  - OSTEOMYELITIS [None]
  - OSTEONECROSIS OF JAW [None]
  - RHINITIS [None]
